FAERS Safety Report 6047189-9 (Version None)
Quarter: 2009Q1

REPORT INFORMATION
  Report Type: 
  Country: None (occurrence: None)
  Receive Date: 20090122
  Receipt Date: 20090108
  Transmission Date: 20090719
  Serious: Yes (Hospitalization, Other)
  Sender: FDA-Public Use
  Company Number: CA-GENENTECH-267885

PATIENT
  Sex: Female

DRUGS (1)
  1. AVASTIN [Suspect]
     Indication: OVARIAN CANCER
     Dosage: 1000 MG, Q2W
     Route: 042
     Dates: start: 20080130

REACTIONS (2)
  - NEPHROSTOMY TUBE PLACEMENT [None]
  - URINARY RETENTION [None]
